FAERS Safety Report 8712597 (Version 5)
Quarter: 2012Q4

REPORT INFORMATION
  Report Type: Report from Study
  Country: CA (occurrence: CA)
  Receive Date: 20120808
  Receipt Date: 20121219
  Transmission Date: 20130627
  Serious: Yes (Death, Other)
  Sender: FDA-Public Use
  Company Number: CA-ABBOTT-12P-028-0964556-00

PATIENT
  Age: 89 Year
  Sex: Male
  Weight: 85.81 kg

DRUGS (1)
  1. LUPRON DEPOT 22.5 MG [Suspect]
     Indication: PROSTATE CANCER
     Dosage: 3 month depot
     Route: 030
     Dates: start: 2006

REACTIONS (2)
  - Myocardial infarction [Fatal]
  - Malaise [Unknown]
